FAERS Safety Report 18667296 (Version 1)
Quarter: 2020Q4

REPORT INFORMATION
  Report Type: Spontaneous
  Country: CN (occurrence: CN)
  Receive Date: 20201228
  Receipt Date: 20201228
  Transmission Date: 20210114
  Serious: Yes (Other)
  Sender: FDA-Public Use
  Company Number: CN-ROCHE-2738159

PATIENT
  Sex: Male
  Weight: 77.5 kg

DRUGS (7)
  1. RITUXIMAB. [Suspect]
     Active Substance: RITUXIMAB
     Route: 041
     Dates: start: 20201015
  2. RITUXIMAB. [Suspect]
     Active Substance: RITUXIMAB
     Route: 041
     Dates: start: 20201208
  3. DEXAMETHASONE SODIUM PHOSPHATE. [Concomitant]
     Active Substance: DEXAMETHASONE SODIUM PHOSPHATE
     Route: 042
  4. DEXAMETHASONE. [Concomitant]
     Active Substance: DEXAMETHASONE
     Route: 040
  5. SALINE [Concomitant]
     Active Substance: SODIUM CHLORIDE
     Route: 041
  6. RITUXIMAB. [Suspect]
     Active Substance: RITUXIMAB
     Indication: DRUG THERAPY
     Route: 041
  7. SALINE [Concomitant]
     Active Substance: SODIUM CHLORIDE

REACTIONS (7)
  - Laryngeal oedema [Recovered/Resolved]
  - Pruritus [Recovered/Resolved]
  - Off label use [Unknown]
  - Dry throat [Recovered/Resolved]
  - Throat irritation [Recovered/Resolved]
  - Intentional product use issue [Unknown]
  - Chest discomfort [Recovered/Resolved]

NARRATIVE: CASE EVENT DATE: 20201015
